FAERS Safety Report 9120269 (Version 1)
Quarter: 2013Q1

REPORT INFORMATION
  Report Type: Report from Study
  Country: US (occurrence: US)
  Receive Date: 20130226
  Receipt Date: 20130226
  Transmission Date: 20140127
  Serious: Yes (Other)
  Sender: FDA-Public Use
  Company Number: US-ABBOTT-13P-163-1053916-00

PATIENT
  Age: 34 Year
  Sex: Male
  Weight: 65.83 kg

DRUGS (2)
  1. HUMIRA [Suspect]
     Indication: CROHN^S DISEASE
     Dates: start: 20120221, end: 20120221
  2. 6-MP [Concomitant]
     Indication: CROHN^S DISEASE

REACTIONS (3)
  - Sensation of foreign body [Unknown]
  - Dizziness [Unknown]
  - Dysgeusia [Unknown]
